FAERS Safety Report 8611654-8 (Version None)
Quarter: 2012Q3

REPORT INFORMATION
  Report Type: 
  Country: None (occurrence: None)
  Receive Date: 20120822
  Receipt Date: 20120815
  Transmission Date: 20120928
  Serious: Yes (Other)
  Sender: FDA-Public Use
  Company Number: CA-ROCHE-1023790

PATIENT
  Sex: Male

DRUGS (6)
  1. VENTOLIN [Concomitant]
  2. PREDNISONE TAB [Concomitant]
  3. SYMBICORT [Concomitant]
  4. XOLAIR [Suspect]
     Route: 058
     Dates: start: 20120411
  5. XOLAIR [Suspect]
     Indication: ASTHMA
     Route: 058
     Dates: start: 20110902
  6. SPIRIVA [Concomitant]

REACTIONS (8)
  - BLOOD PRESSURE INCREASED [None]
  - WRIST FRACTURE [None]
  - FATIGUE [None]
  - DISCOMFORT [None]
  - PRODUCTIVE COUGH [None]
  - LOWER RESPIRATORY TRACT INFECTION [None]
  - NASOPHARYNGITIS [None]
  - MALAISE [None]
